FAERS Safety Report 4590460-8 (Version None)
Quarter: 2005Q1

REPORT INFORMATION
  Report Type: 
  Country: None (occurrence: None)
  Receive Date: 20050224
  Receipt Date: 20050214
  Transmission Date: 20050727
  Serious: Yes (Other)
  Sender: FDA-Public Use
  Company Number: US-BRISTOL-MYERS SQUIBB COMPANY-12862462

PATIENT
  Age: 78 Year
  Sex: Female

DRUGS (2)
  1. AZACTAM [Suspect]
  2. HEPARIN [Concomitant]
     Dosage: DOSAGE FORM = UNIT
     Route: 058

REACTIONS (2)
  - ACTIVATED PARTIAL THROMBOPLASTIN TIME PROLONGED [None]
  - EPISTAXIS [None]
